FAERS Safety Report 6417108-1 (Version None)
Quarter: 2009Q4

REPORT INFORMATION
  Report Type: 
  Country: None (occurrence: None)
  Receive Date: 20091028
  Receipt Date: 20091020
  Transmission Date: 20100525
  Serious: Yes (Death)
  Sender: FDA-Public Use
  Company Number: JP-ALLERGAN-0914609US

PATIENT
  Age: 7 Year
  Sex: Male

DRUGS (4)
  1. BOTOX [Suspect]
     Indication: TORTICOLLIS
     Dosage: 100 UNITS, SINGLE
     Route: 030
     Dates: start: 20071127, end: 20071127
  2. BOTOX [Suspect]
     Dosage: 100 UNITS, SINGLE
     Route: 030
     Dates: start: 20090708, end: 20090708
  3. DEPAKENE [Concomitant]
     Route: 048
  4. PHENYTOIN [Concomitant]

REACTIONS (1)
  - ENCEPHALITIS VIRAL [None]
